FAERS Safety Report 19264955 (Version 1)
Quarter: 2021Q2

REPORT INFORMATION
  Report Type: Spontaneous
  Country: CN (occurrence: CN)
  Receive Date: 20210517
  Receipt Date: 20210517
  Transmission Date: 20210717
  Serious: Yes (Other)
  Sender: FDA-Public Use
  Company Number: CN-ASTRAZENECA-2021A396722

PATIENT
  Age: 29074 Day
  Sex: Female

DRUGS (1)
  1. OSIMERTINIB MESYLATE. [Suspect]
     Active Substance: OSIMERTINIB MESYLATE
     Indication: LUNG NEOPLASM MALIGNANT
     Route: 048
     Dates: start: 20210315, end: 20210416

REACTIONS (1)
  - Myelosuppression [Recovering/Resolving]

NARRATIVE: CASE EVENT DATE: 20210414
